FAERS Safety Report 24658753 (Version 1)
Quarter: 2024Q4

REPORT INFORMATION
  Report Type: Spontaneous
  Country: CZ (occurrence: CZ)
  Receive Date: 20241125
  Receipt Date: 20241125
  Transmission Date: 20250115
  Serious: Yes (Other)
  Sender: ACCORD
  Company Number: CZ-Accord-210704

PATIENT
  Age: 7 Decade
  Sex: Male

DRUGS (4)
  1. FLUOROURACIL [Suspect]
     Active Substance: FLUOROURACIL
     Indication: Intestinal adenocarcinoma
     Dates: start: 201507, end: 2016
  2. IRINOTECAN [Suspect]
     Active Substance: IRINOTECAN
     Indication: Intestinal adenocarcinoma
     Dates: start: 201507, end: 2016
  3. LEUCOVORIN [Suspect]
     Active Substance: LEUCOVORIN\LEUCOVORIN CALCIUM
     Indication: Intestinal adenocarcinoma
     Dates: start: 201507, end: 2016
  4. CETUXIMAB [Suspect]
     Active Substance: CETUXIMAB
     Indication: Intestinal adenocarcinoma
     Dates: start: 201507, end: 2016

REACTIONS (5)
  - Skin toxicity [Unknown]
  - Alopecia [Unknown]
  - Diarrhoea [Unknown]
  - Fatigue [Unknown]
  - Weight decreased [Unknown]

NARRATIVE: CASE EVENT DATE: 20150101
